FAERS Safety Report 9704522 (Version 2)
Quarter: 2014Q2

REPORT INFORMATION
  Report Type: Report from Study
  Country: GB (occurrence: GB)
  Receive Date: 20131122
  Receipt Date: 20140421
  Transmission Date: 20141212
  Serious: Yes (Hospitalization)
  Sender: FDA-Public Use
  Company Number: GB-ROCHE-1306772

PATIENT
  Age: 55 Year
  Sex: Male
  Weight: 123 kg

DRUGS (3)
  1. RITUXIMAB [Suspect]
     Indication: RHEUMATOID ARTHRITIS
     Route: 065
     Dates: start: 20110115
  2. CLEXANE [Concomitant]
     Route: 058
  3. FLUCLOXACILLIN [Concomitant]
     Route: 048

REACTIONS (2)
  - Cellulitis [Recovered/Resolved with Sequelae]
  - Deep vein thrombosis [Unknown]
